FAERS Safety Report 7631714-8 (Version None)
Quarter: 2011Q3

REPORT INFORMATION
  Report Type: 
  Country: None (occurrence: None)
  Receive Date: 20110725
  Receipt Date: 20110712
  Transmission Date: 20111222
  Serious: Yes (Other)
  Sender: FDA-Public Use
  Company Number: US-ELI_LILLY_AND_COMPANY-US200910006468

PATIENT
  Sex: Female

DRUGS (7)
  1. FORTEO [Suspect]
     Indication: OSTEOPOROSIS
     Dosage: 20 UG, DAILY (1/D)
     Route: 065
  2. VITAMIN D [Concomitant]
  3. FORTEO [Suspect]
     Dosage: 20 UG, QD
     Dates: end: 20110704
  4. FORTEO [Suspect]
     Dosage: 20 UG, DAILY (1/D)
     Route: 065
     Dates: start: 20091023
  5. CALCIUM CARBONATE [Concomitant]
  6. FORTEO [Suspect]
     Dosage: 20 UG, DAILY (1/D)
     Route: 065
  7. GLUCOSAMINE [Concomitant]

REACTIONS (9)
  - UPPER RESPIRATORY TRACT CONGESTION [None]
  - COUGH [None]
  - DIZZINESS [None]
  - BLOOD CALCIUM INCREASED [None]
  - ENDOMETRIAL HYPERTROPHY [None]
  - BONE PAIN [None]
  - VIRAL INFECTION [None]
  - UTERINE MASS [None]
  - SPEECH DISORDER [None]
